FAERS Safety Report 15256785 (Version 1)
Quarter: 2018Q3

REPORT INFORMATION
  Report Type: Report from Study
  Country: US (occurrence: US)
  Receive Date: 20180808
  Receipt Date: 20180808
  Transmission Date: 20181010
  Serious: Yes (Other)
  Sender: FDA-Public Use
  Company Number: US-OTSUKA-2017_025048

PATIENT
  Sex: Female

DRUGS (3)
  1. BREXPIPRAZOLE [Suspect]
     Active Substance: BREXPIPRAZOLE
     Indication: BIPOLAR DISORDER
     Dosage: 1 MG, QD
     Route: 048
  2. WELLBUTRIN [Concomitant]
     Active Substance: BUPROPION HYDROCHLORIDE
     Indication: PRODUCT USED FOR UNKNOWN INDICATION
     Dosage: UNK
     Route: 065
  3. BREXPIPRAZOLE [Suspect]
     Active Substance: BREXPIPRAZOLE
     Dosage: 1 DF, UNK
     Route: 065
     Dates: start: 20171109

REACTIONS (4)
  - Bed rest [Unknown]
  - Memory impairment [Unknown]
  - Product use in unapproved indication [Unknown]
  - Pneumonia [Unknown]

NARRATIVE: CASE EVENT DATE: 20171109
